FAERS Safety Report 21528814 (Version 1)
Quarter: 2022Q4

REPORT INFORMATION
  Report Type: Spontaneous
  Country: US (occurrence: US)
  Receive Date: 20221031
  Receipt Date: 20221031
  Transmission Date: 20230113
  Serious: Yes (Life-Threatening, Other)
  Sender: FDA-Public Use
  Company Number: US-JNJFOC-20221049870

PATIENT

DRUGS (1)
  1. ACETAMINOPHEN [Suspect]
     Active Substance: ACETAMINOPHEN
     Indication: Product used for unknown indication
     Route: 048

REACTIONS (10)
  - Toxicity to various agents [Unknown]
  - Acidosis [Unknown]
  - Blood pH decreased [Unknown]
  - PCO2 decreased [Unknown]
  - Blood bicarbonate decreased [Unknown]
  - Blood lactic acid increased [Unknown]
  - Mental impairment [Unknown]
  - Hepatotoxicity [Unknown]
  - Haemodynamic instability [Unknown]
  - Product use issue [Unknown]
